FAERS Safety Report 4974951-3 (Version None)
Quarter: 2006Q2

REPORT INFORMATION
  Report Type: 
  Country: None (occurrence: None)
  Receive Date: 20060414
  Receipt Date: 20060414
  Transmission Date: 20061013
  Serious: Yes (Other)
  Sender: FDA-Public Use
  Company Number: None

PATIENT
  Sex: Female
  Weight: 69 kg

DRUGS (3)
  1. CYTARABINE [Suspect]
     Indication: ACUTE MYELOID LEUKAEMIA
     Dosage: 880 MG
     Dates: start: 20060203, end: 20060207
  2. DAUNORUBICIN HCL [Suspect]
     Dosage: 320 MG
     Dates: start: 20060203, end: 20060204
  3. ETOPOSIDE [Suspect]
     Dosage: 360 MG
     Dates: start: 20060203, end: 20060204

REACTIONS (4)
  - MUCOSAL INFLAMMATION [None]
  - ORAL INTAKE REDUCED [None]
  - PAIN [None]
  - SEDATION [None]
